FAERS Safety Report 19795392 (Version 1)
Quarter: 2021Q3

REPORT INFORMATION
  Report Type: Spontaneous
  Country: BR (occurrence: BR)
  Receive Date: 20210907
  Receipt Date: 20210907
  Transmission Date: 20211014
  Serious: Yes (Other)
  Sender: FDA-Public Use
  Company Number: BR-B.I. PHARMACEUTICALS,INC./RIDGEFIELD-2021-BI-125412

PATIENT
  Age: 77 Year
  Sex: Male

DRUGS (4)
  1. ONICIT [Suspect]
     Active Substance: PALONOSETRON HYDROCHLORIDE
     Indication: HEPATIC CANCER
  2. PRADAXA [Suspect]
     Active Substance: DABIGATRAN ETEXILATE MESYLATE
     Indication: PRODUCT USED FOR UNKNOWN INDICATION
     Dosage: TWICE DAILY
  3. OXALIPLATINA [Suspect]
     Active Substance: OXALIPLATIN
     Indication: HEPATIC CANCER
  4. ACIDO FOLINICO [Suspect]
     Active Substance: LEUCOVORIN CALCIUM
     Indication: HEPATIC CANCER

REACTIONS (4)
  - Drug interaction [Unknown]
  - Hepatic cancer [Unknown]
  - Fatigue [Unknown]
  - International normalised ratio abnormal [Unknown]
